FAERS Safety Report 11877180 (Version 1)
Quarter: 2015Q4

REPORT INFORMATION
  Report Type: Spontaneous
  Country: US (occurrence: US)
  Receive Date: 20151229
  Receipt Date: 20151229
  Transmission Date: 20160305
  Serious: No
  Sender: FDA-Public Use
  Company Number: US-TARO-2015TAR00078

PATIENT
  Age: 71 Year
  Sex: Male
  Weight: 74.83 kg

DRUGS (4)
  1. ATHLETES FOOT NOS [Suspect]
     Active Substance: MICONAZOLE NITRATE OR TERBINAFINE HYDROCHLORIDE OR TOLNAFTATE
     Indication: SKIN EXFOLIATION
     Dosage: UNK UNK, 1X/DAY
     Route: 061
     Dates: start: 2013
  2. TRIAMCINOLONE ACETONIDE CREAM USP 0.1% [Suspect]
     Active Substance: TRIAMCINOLONE ACETONIDE
     Indication: SKIN EXFOLIATION
     Dosage: UNK UNK, 1X/DAY
     Route: 061
  3. AMMONIUM LACTATE. [Concomitant]
     Active Substance: AMMONIUM LACTATE
     Indication: PRURITUS
  4. UNSPECIFIED THYROID MEDICATION [Concomitant]
     Active Substance: UNSPECIFIED INGREDIENT

REACTIONS (4)
  - Skin atrophy [Recovering/Resolving]
  - Drug ineffective for unapproved indication [Recovered/Resolved]
  - Skin exfoliation [Not Recovered/Not Resolved]
  - Skin haemorrhage [Recovered/Resolved]
